FAERS Safety Report 9782101 (Version 2)
Quarter: 2014Q1

REPORT INFORMATION
  Report Type: Spontaneous
  Country: US (occurrence: US)
  Receive Date: 20131226
  Receipt Date: 20140120
  Transmission Date: 20141002
  Serious: Yes (Hospitalization, Other)
  Sender: FDA-Public Use
  Company Number: US-BAXTER-2013BAX051364

PATIENT
  Sex: Male

DRUGS (5)
  1. DIANEAL LOW CALCIUM [Suspect]
     Indication: PERITONEAL DIALYSIS
     Route: 033
  2. DIANEAL LOW CALCIUM [Suspect]
     Route: 033
  3. DIANEAL LOW CALCIUM [Suspect]
     Indication: PERITONEAL DIALYSIS
     Route: 033
  4. DIANEAL LOW CALCIUM [Suspect]
     Route: 033
  5. FLAGYL [Suspect]
     Indication: DIARRHOEA
     Route: 065

REACTIONS (7)
  - Convulsion [Recovered/Resolved]
  - Cardiac arrest [Unknown]
  - Cerebrovascular accident [Recovered/Resolved]
  - Medical device complication [Recovering/Resolving]
  - Multimorbidity [Recovering/Resolving]
  - Blood potassium increased [Recovered/Resolved]
  - Myocardial infarction [Recovered/Resolved]
